FAERS Safety Report 18552731 (Version 2)
Quarter: 2021Q1

REPORT INFORMATION
  Report Type: Report from Study
  Country: US (occurrence: US)
  Receive Date: 20201127
  Receipt Date: 20210107
  Transmission Date: 20210419
  Serious: No
  Sender: FDA-Public Use
  Company Number: US-SA-2020SA334023

PATIENT

DRUGS (3)
  1. DUPILUMAB [Suspect]
     Active Substance: DUPILUMAB
     Indication: DERMATITIS ATOPIC
     Dosage: UNK UNK, 1X
  2. DUPILUMAB [Suspect]
     Active Substance: DUPILUMAB
     Dosage: 300 MG, QOW
     Route: 058
  3. DUPILUMAB [Suspect]
     Active Substance: DUPILUMAB
     Indication: PSORIASIS
     Dosage: 300 MG, QOW
     Route: 058

REACTIONS (5)
  - Skin fissures [Unknown]
  - Product use in unapproved indication [Unknown]
  - Pruritus [Unknown]
  - Skin exfoliation [Unknown]
  - Dry skin [Unknown]
